FAERS Safety Report 6687016-X (Version None)
Quarter: 2010Q2

REPORT INFORMATION
  Report Type: 
  Country: None (occurrence: None)
  Receive Date: 20100416
  Receipt Date: 20100416
  Transmission Date: 20101027
  Serious: Yes (Hospitalization)
  Sender: FDA-Public Use
  Company Number: None

PATIENT
  Sex: Female
  Weight: 74.8435 kg

DRUGS (1)
  1. TRILYTE [Suspect]
     Indication: COLONOSCOPY
     Dosage: DRINK 2 LITER

REACTIONS (3)
  - DRUG HYPERSENSITIVITY [None]
  - MALAISE [None]
  - NAUSEA [None]
